FAERS Safety Report 14588373 (Version 1)
Quarter: 2018Q1

REPORT INFORMATION
  Report Type: Spontaneous
  Country: JP (occurrence: JP)
  Receive Date: 20180301
  Receipt Date: 20180301
  Transmission Date: 20180509
  Serious: Yes (Other)
  Sender: FDA-Public Use
  Company Number: JP-MYLANLABS-2018M1013930

PATIENT
  Age: 64 Year
  Sex: Female
  Weight: 59 kg

DRUGS (11)
  1. FENTANYL. [Suspect]
     Active Substance: FENTANYL
     Indication: POSTOPERATIVE ANALGESIA
     Dosage: 3 UG/ML
     Route: 008
  2. ROPIVACAINE [Suspect]
     Active Substance: ROPIVACAINE
     Indication: PERIOPERATIVE ANALGESIA
     Dosage: UNK
     Route: 008
  3. REMIFENTANIL [Suspect]
     Active Substance: REMIFENTANIL
     Indication: INDUCTION OF ANAESTHESIA
     Dosage: 0.25 MICROG/KG/MIN
     Route: 065
  4. SUGAMMADEX [Concomitant]
     Active Substance: SUGAMMADEX
     Indication: PRODUCT USED FOR UNKNOWN INDICATION
     Dosage: 2 MG/KG
     Route: 065
  5. REMIFENTANIL [Suspect]
     Active Substance: REMIFENTANIL
     Indication: MAINTENANCE OF ANAESTHESIA
     Dosage: 0.1 MICROG/KG/MIN
     Route: 065
  6. METOCLOPRAMIDE. [Concomitant]
     Active Substance: METOCLOPRAMIDE
     Indication: PROCEDURAL NAUSEA
     Dosage: UP TO 20 MG/DAY
     Route: 042
  7. ROCURONIUM [Suspect]
     Active Substance: ROCURONIUM BROMIDE
     Indication: INDUCTION OF ANAESTHESIA
     Dosage: 0.7 MG/KG
     Route: 065
  8. PROPOFOL. [Suspect]
     Active Substance: PROPOFOL
     Indication: INDUCTION OF ANAESTHESIA
     Dosage: 1 MG/KG
     Route: 042
  9. ROCURONIUM [Suspect]
     Active Substance: ROCURONIUM BROMIDE
     Indication: MAINTENANCE OF ANAESTHESIA
     Dosage: 10 MG/H
     Route: 065
  10. ROPIVACAINE [Suspect]
     Active Substance: ROPIVACAINE
     Indication: POSTOPERATIVE ANALGESIA
     Dosage: 3-4 ML/H
     Route: 008
  11. DESFLURANE. [Suspect]
     Active Substance: DESFLURANE
     Indication: MAINTENANCE OF ANAESTHESIA
     Route: 065

REACTIONS (1)
  - Head titubation [Not Recovered/Not Resolved]
